FAERS Safety Report 14285043 (Version 2)
Quarter: 2017Q4

REPORT INFORMATION
  Report Type: Report from Study
  Country: None (occurrence: US)
  Receive Date: 20171214
  Receipt Date: 20171219
  Transmission Date: 20180321
  Serious: Yes (Hospitalization)
  Sender: FDA-Public Use
  Company Number: US-ABBVIE-17K-163-2188572-00

PATIENT
  Age: 69 Year
  Sex: Female
  Weight: 136.2 kg

DRUGS (2)
  1. HUMIRA [Suspect]
     Active Substance: ADALIMUMAB
     Indication: CROHN^S DISEASE
     Route: 058
     Dates: start: 20170913
  2. PREDNISONE. [Suspect]
     Active Substance: PREDNISONE
     Indication: CROHN^S DISEASE
     Route: 065

REACTIONS (8)
  - Hypotension [Unknown]
  - Tachycardia [Recovered/Resolved]
  - Chest pain [Unknown]
  - Atrial fibrillation [Recovered/Resolved]
  - Glycosylated haemoglobin increased [Unknown]
  - Device issue [Unknown]
  - Hyperglycaemia [Recovered/Resolved]
  - Fatigue [Unknown]

NARRATIVE: CASE EVENT DATE: 201711
